FAERS Safety Report 18143275 (Version 1)
Quarter: 2020Q3

REPORT INFORMATION
  Report Type: Report from Study
  Country: UA (occurrence: UA)
  Receive Date: 20200812
  Receipt Date: 20200812
  Transmission Date: 20201103
  Serious: Yes (Other)
  Sender: FDA-Public Use
  Company Number: UA-SEATTLE GENETICS-2020SGN01662

PATIENT
  Sex: Female

DRUGS (2)
  1. BRENTUXIMAB VEDOTIN [Suspect]
     Active Substance: BRENTUXIMAB VEDOTIN
     Indication: HODGKIN^S DISEASE REFRACTORY
     Dosage: 120 MILLIGRAM
     Route: 042
     Dates: start: 20190325, end: 20200217
  2. BENDAMUSTINE [Suspect]
     Active Substance: BENDAMUSTINE
     Indication: PRODUCT USED FOR UNKNOWN INDICATION
     Dosage: UNK
     Route: 065
     Dates: start: 20190607, end: 20200217

REACTIONS (4)
  - Pneumonia [Unknown]
  - Hodgkin^s disease [Unknown]
  - Nasopharyngitis [Unknown]
  - Off label use [Unknown]
